FAERS Safety Report 5350370-5 (Version None)
Quarter: 2007Q2

REPORT INFORMATION
  Report Type: 
  Country: None (occurrence: None)
  Receive Date: 20070605
  Receipt Date: 20070605
  Transmission Date: 20071010
  Serious: Yes (Other)
  Sender: FDA-Public Use
  Company Number: None

PATIENT
  Sex: Female
  Weight: 78.0187 kg

DRUGS (4)
  1. PORAIR HFA  90MCG ALBUTEROL/PUFF - IVAX [Suspect]
     Indication: ASTHMA
     Dosage: 2 PUFFS EVERY 4 TO 6 HOURS INHAL
     Route: 055
     Dates: start: 20061215, end: 20070525
  2. ADVAIR DISKUS 100/50 [Concomitant]
  3. PREDNISONE TAB [Concomitant]
  4. SINGULAIR [Concomitant]

REACTIONS (3)
  - ASTHMA [None]
  - DEVICE MALFUNCTION [None]
  - DRUG INEFFECTIVE [None]
